FAERS Safety Report 23796169 (Version 1)
Quarter: 2024Q2

REPORT INFORMATION
  Report Type: Report from Study
  Country: ZA (occurrence: ZA)
  Receive Date: 20240430
  Receipt Date: 20240430
  Transmission Date: 20240716
  Serious: Yes (Hospitalization)
  Sender: FDA-Public Use
  Company Number: ZA-ABBVIE-5736285

PATIENT
  Age: 69 Year
  Sex: Female

DRUGS (1)
  1. OZURDEX [Suspect]
     Active Substance: DEXAMETHASONE
     Indication: Diabetic retinal oedema
     Dosage: TIME INTERVAL: AS NECESSARY: FORM STRENGTH- 0.7 MILLIGRAM, EVERY 4 - 6 MONTHS
     Route: 050
     Dates: start: 20230828

REACTIONS (2)
  - Intraocular lens implant [Unknown]
  - Iridocele [Unknown]

NARRATIVE: CASE EVENT DATE: 20240425
